FAERS Safety Report 6558180-8 (Version None)
Quarter: 2010Q1

REPORT INFORMATION
  Report Type: 
  Country: None (occurrence: None)
  Receive Date: 20100126
  Receipt Date: 20100115
  Transmission Date: 20100710
  Serious: Yes (Death)
  Sender: FDA-Public Use
  Company Number: DSU-2009-02466

PATIENT
  Sex: Female
  Weight: 70.3075 kg

DRUGS (4)
  1. AZOR (AMLODIPINE/OLMESARTAN MEDOXOMIL) [Suspect]
     Indication: HYPERTENSION
     Dosage: 10/40 MG (QD), PER ORAL
     Route: 048
     Dates: start: 20090323
  2. TEKTURNA HCT          (ALISKIREN AND HYDROCHLOROTHIAZIDE) [Concomitant]
  3. ASPIRIN [Concomitant]
  4. BISTOLIC (NEBIVOLOL) [Concomitant]

REACTIONS (1)
  - RHABDOMYOLYSIS [None]
